FAERS Safety Report 7939125-2 (Version None)
Quarter: 2011Q4

REPORT INFORMATION
  Report Type: 
  Country: None (occurrence: None)
  Receive Date: 20111124
  Receipt Date: 20111114
  Transmission Date: 20120403
  Serious: Yes (Hospitalization)
  Sender: FDA-Public Use
  Company Number: IT-ROCHE-1012762

PATIENT
  Sex: Male

DRUGS (1)
  1. VALIUM [Suspect]
     Indication: HEADACHE
     Route: 048
     Dates: start: 20110707, end: 20110707

REACTIONS (3)
  - PRESYNCOPE [None]
  - AMAUROSIS [None]
  - SOPOR [None]
